FAERS Safety Report 9208237 (Version 1)
Quarter: 2013Q2

REPORT INFORMATION
  Report Type: Report from Study
  Country: CA (occurrence: CA)
  Receive Date: 20130403
  Receipt Date: 20130403
  Transmission Date: 20140414
  Serious: Yes (Other)
  Sender: FDA-Public Use
  Company Number: CA-JNJFOC-20130400531

PATIENT
  Age: 52 Year
  Sex: Female
  Weight: 71.22 kg

DRUGS (3)
  1. SIMPONI [Suspect]
     Indication: RHEUMATOID ARTHRITIS
     Dates: start: 201002
  2. FLUPENTIXOL [Concomitant]
     Indication: DEPRESSION
  3. CITALOPRAM [Concomitant]
     Indication: DEPRESSION

REACTIONS (3)
  - Malignant melanoma [Unknown]
  - Attention deficit/hyperactivity disorder [Unknown]
  - Nasopharyngitis [Not Recovered/Not Resolved]
